FAERS Safety Report 8474603-1 (Version None)
Quarter: 2012Q2

REPORT INFORMATION
  Report Type: 
  Country: None (occurrence: None)
  Receive Date: 20120622
  Receipt Date: 20120608
  Transmission Date: 20120825
  Serious: Yes (Hospitalization)
  Sender: FDA-Public Use
  Company Number: 1316854

PATIENT
  Age: 60 Year
  Sex: Male

DRUGS (8)
  1. (INSTANYL) [Concomitant]
  2. MORPHINE SULFATE [Concomitant]
  3. PREDNISOLONE [Concomitant]
  4. LYRICA [Concomitant]
  5. ACETAMINOPHEN [Concomitant]
  6. ESCITALOPRAM [Concomitant]
  7. ZOLPIDEM TARTRATE [Concomitant]
  8. DOCETAXEL [Suspect]
     Indication: NEOPLASM MALIGNANT
     Dosage: 110 MG MILLIGRAM(S) INTRAVENOUS DRIP
     Route: 041
     Dates: start: 20120507, end: 20120507

REACTIONS (11)
  - BICYTOPENIA [None]
  - HYPOVOLAEMIA [None]
  - PRODUCTIVE COUGH [None]
  - HYPOVENTILATION [None]
  - CREPITATIONS [None]
  - HYPERHIDROSIS [None]
  - HYPOTENSION [None]
  - DYSPNOEA [None]
  - BACTERIAL SEPSIS [None]
  - SOMNOLENCE [None]
  - TACHYCARDIA [None]
